FAERS Safety Report 8543000-2 (Version None)
Quarter: 2012Q3

REPORT INFORMATION
  Report Type: 
  Country: None (occurrence: None)
  Receive Date: 20120727
  Receipt Date: 20120718
  Transmission Date: 20120928
  Serious: Yes (Other)
  Sender: FDA-Public Use
  Company Number: FR-JNJFOC-20091103502

PATIENT
  Sex: Female
  Weight: 62 kg

DRUGS (15)
  1. DESLORATADINE [Concomitant]
     Indication: DRY SKIN
     Route: 065
     Dates: start: 20091019
  2. ANTIBIOTIC [Concomitant]
     Indication: CYSTITIS
     Route: 065
     Dates: start: 20090901
  3. RILMENIDINE [Concomitant]
     Indication: HYPERTENSION
     Route: 065
     Dates: start: 20080101
  4. DOMPERIDONE [Concomitant]
     Indication: GASTROOESOPHAGEAL REFLUX DISEASE
     Route: 065
     Dates: start: 20091008
  5. GALANTAMINE HYDROBROMIDE [Suspect]
     Route: 048
  6. GALANTAMINE HYDROBROMIDE [Suspect]
     Route: 048
     Dates: start: 20091003, end: 20091027
  7. ZOLPIDEM [Concomitant]
     Indication: SLEEP DISORDER
     Route: 065
     Dates: start: 20090101
  8. SODIUM ALGINATE [Concomitant]
     Indication: GASTROOESOPHAGEAL REFLUX DISEASE
     Route: 065
     Dates: start: 20091008
  9. EXFORGE [Concomitant]
     Indication: HYPERTENSION
     Route: 065
     Dates: start: 20090101
  10. GALANTAMINE HYDROBROMIDE [Suspect]
     Indication: DEMENTIA ALZHEIMER'S TYPE
     Route: 048
  11. PANTOPRAZOLE [Concomitant]
     Indication: GASTROOESOPHAGEAL REFLUX DISEASE
     Route: 065
     Dates: start: 20091008
  12. GLIMEPIRIDE [Concomitant]
     Indication: DIABETES MELLITUS
     Route: 065
     Dates: start: 20090216
  13. MEMANTINE HYDROCHLORIDE [Concomitant]
     Indication: DEMENTIA ALZHEIMER'S TYPE
     Route: 065
     Dates: start: 20090101
  14. CERAT DE GALIEN [Concomitant]
     Indication: DRY SKIN
     Route: 065
     Dates: start: 20091001
  15. VERATRAN [Concomitant]
     Indication: SLEEP DISORDER
     Route: 065
     Dates: start: 20090101

REACTIONS (1)
  - RASH [None]
